FAERS Safety Report 9049137 (Version 3)
Quarter: 2013Q1

REPORT INFORMATION
  Report Type: Spontaneous
  Country: US (occurrence: US)
  Receive Date: 20130205
  Receipt Date: 20130315
  Transmission Date: 20140127
  Serious: No
  Sender: FDA-Public Use
  Company Number: US-PFIZER INC-2013044067

PATIENT
  Age: 53 Year
  Sex: Female
  Weight: 52.61 kg

DRUGS (1)
  1. SUTENT [Suspect]
     Indication: PANCREATIC NEUROENDOCRINE TUMOUR
     Dosage: 37.5 MG, 1X/DAY
     Dates: start: 20130101

REACTIONS (6)
  - Dysphagia [Unknown]
  - Dysgeusia [Unknown]
  - Gingival bleeding [Unknown]
  - Hypoaesthesia [Unknown]
  - Dyspepsia [Unknown]
  - Gastrooesophageal reflux disease [Unknown]
